FAERS Safety Report 24596117 (Version 1)
Quarter: 2024Q4

REPORT INFORMATION
  Report Type: Spontaneous
  Country: FR (occurrence: FR)
  Receive Date: 20241110
  Receipt Date: 20241110
  Transmission Date: 20250114
  Serious: Yes (Other)
  Sender: AUROBINDO
  Company Number: FR-AFSSAPS-AVNY2024000420

PATIENT
  Age: 29 Year
  Sex: Male
  Weight: 65 kg

DRUGS (2)
  1. HYDROXYZINE [Suspect]
     Active Substance: HYDROXYZINE HYDROCHLORIDE
     Indication: Product used for unknown indication
     Dosage: UNK (6 TABLETS OF 25 MG OR 150 MG IN TOTAL)
     Route: 048
     Dates: start: 20240703, end: 20240703
  2. COCAINE [Suspect]
     Active Substance: COCAINE
     Indication: Product used for unknown indication
     Dosage: 1 GRAM
     Dates: start: 20240702

REACTIONS (3)
  - Substance use disorder [Unknown]
  - Drug use disorder [Unknown]
  - Toxicity to various agents [Unknown]

NARRATIVE: CASE EVENT DATE: 20240702
